FAERS Safety Report 24138597 (Version 1)
Quarter: 2024Q3

REPORT INFORMATION
  Report Type: Report from Study
  Country: ES (occurrence: ES)
  Receive Date: 20240725
  Receipt Date: 20240725
  Transmission Date: 20241017
  Serious: Yes (Other)
  Sender: TEVA
  Company Number: ES-TEVA-VS-3224533

PATIENT

DRUGS (2)
  1. AMLODIPINE [Interacting]
     Active Substance: AMLODIPINE BESYLATE
     Indication: Product used for unknown indication
     Route: 065
  2. NIRMATRELVIR\RITONAVIR [Interacting]
     Active Substance: NIRMATRELVIR\RITONAVIR
     Indication: COVID-19
     Dosage: EVERY 12H FOR 5?DAYS; RITONAVIR-STRENGTH 100MG
     Route: 065

REACTIONS (2)
  - Hypotension [Recovering/Resolving]
  - Drug interaction [Recovering/Resolving]
